FAERS Safety Report 5338667-6 (Version None)
Quarter: 2007Q2

REPORT INFORMATION
  Report Type: 
  Country: None (occurrence: None)
  Receive Date: 20070530
  Receipt Date: 20061114
  Transmission Date: 20071010
  Serious: No
  Sender: FDA-Public Use
  Company Number: A0627485A

PATIENT
  Age: 14 Year
  Sex: Female

DRUGS (1)
  1. VENTOLIN [Suspect]
     Route: 055
     Dates: start: 20061113

REACTIONS (1)
  - DRUG INEFFECTIVE [None]
